FAERS Safety Report 5358471-2 (Version None)
Quarter: 2007Q2

REPORT INFORMATION
  Report Type: 
  Country: None (occurrence: None)
  Receive Date: 20070601
  Receipt Date: 20070314
  Transmission Date: 20071010
  Serious: No
  Sender: FDA-Public Use
  Company Number: US-1162200

PATIENT
  Age: 82 Year
  Sex: Female
  Weight: 68.0396 kg

DRUGS (6)
  1. NEVANAC [Suspect]
     Indication: IRITIS
     Dosage: (I GTT OU TID PRN OPHTHALMIC)
     Route: 047
     Dates: start: 20060830, end: 20070316
  2. NORVASC [Concomitant]
  3. COZAAR [Concomitant]
  4. DIGOXIN [Concomitant]
  5. ASPIRIN [Concomitant]
  6. ATIVAN [Concomitant]

REACTIONS (3)
  - ASTHENIA [None]
  - BLOOD PRESSURE INCREASED [None]
  - DIZZINESS [None]
